FAERS Safety Report 5383549-7 (Version None)
Quarter: 2007Q3

REPORT INFORMATION
  Report Type: 
  Country: None (occurrence: None)
  Receive Date: 20070706
  Receipt Date: 20070629
  Transmission Date: 20080115
  Serious: Yes (Death)
  Sender: FDA-Public Use
  Company Number: 2007-160668-NL

PATIENT
  Sex: Female

DRUGS (2)
  1. ROCURONIUM BROMIDE [Suspect]
     Dosage: 50 MG Q1HR INTRAVENOUS (NOS)
     Route: 042
     Dates: start: 20070501
  2. ROCURONIUM BROMIDE [Suspect]
     Dosage: 50 MG Q1HR INTRAVENOUS (NOS)
     Route: 042
     Dates: start: 20070501

REACTIONS (1)
  - PUPILLARY REFLEX IMPAIRED [None]
